FAERS Safety Report 9768071 (Version 1)
Quarter: 2013Q4

REPORT INFORMATION
  Report Type: Spontaneous
  Country: FR (occurrence: FR)
  Receive Date: 20131217
  Receipt Date: 20131217
  Transmission Date: 20140711
  Serious: Yes (Hospitalization)
  Sender: FDA-Public Use
  Company Number: FR-SA-2013SA130049

PATIENT
  Age: 60 Year
  Sex: Male

DRUGS (12)
  1. RENVELA [Suspect]
     Indication: PRODUCT USED FOR UNKNOWN INDICATION
     Route: 048
     Dates: start: 20131031, end: 20131101
  2. INEXIUM [Suspect]
     Indication: PRODUCT USED FOR UNKNOWN INDICATION
     Route: 065
     Dates: start: 20130731, end: 20131107
  3. ENDOXAN [Suspect]
     Indication: PRODUCT USED FOR UNKNOWN INDICATION
     Route: 042
     Dates: start: 20130814, end: 20131002
  4. BISOPROLOL [Concomitant]
  5. PREDNISONE [Concomitant]
  6. LEVEMIR [Concomitant]
  7. LASILIX [Concomitant]
  8. REPAGLINIDE [Concomitant]
  9. ARANESP [Concomitant]
  10. VENOFER [Concomitant]
  11. SODIUM BICARBONATE [Concomitant]
  12. FOLINATE DE CALCIUM [Concomitant]

REACTIONS (2)
  - Neutropenia [Recovered/Resolved]
  - Pyrexia [Recovered/Resolved]
